FAERS Safety Report 5534167-9 (Version None)
Quarter: 2007Q4

REPORT INFORMATION
  Report Type: 
  Country: None (occurrence: None)
  Receive Date: 20071129
  Receipt Date: 20071129
  Transmission Date: 20080405
  Serious: Yes (Hospitalization)
  Sender: FDA-Public Use
  Company Number: None

PATIENT
  Age: 61 Year
  Weight: 91.6266 kg

DRUGS (1)
  1. ERYTHROMYCIN [Suspect]
     Indication: IMPAIRED GASTRIC EMPTYING
     Dosage: 250MG TID PO
     Route: 048
     Dates: start: 20071011, end: 20071014

REACTIONS (1)
  - PANCREATITIS ACUTE [None]
